FAERS Safety Report 6085183-2 (Version None)
Quarter: 2009Q1

REPORT INFORMATION
  Report Type: 
  Country: None (occurrence: None)
  Receive Date: 20090220
  Receipt Date: 20090212
  Transmission Date: 20090719
  Serious: Yes (Other)
  Sender: FDA-Public Use
  Company Number: CH-ASTRAZENECA-2009PK00583

PATIENT
  Age: 61 Year
  Sex: Female
  Weight: 73.8 kg

DRUGS (8)
  1. NEXIUM [Suspect]
     Route: 048
     Dates: start: 20080101, end: 20081201
  2. SINTROM [Interacting]
     Route: 048
     Dates: start: 20050901
  3. PREDNISONE TAB [Concomitant]
     Route: 048
     Dates: start: 20080101
  4. AMLODIPINE [Concomitant]
     Route: 048
  5. GLUCOPHAGE [Concomitant]
     Route: 048
     Dates: start: 20080801
  6. LISINOPRIL [Concomitant]
     Route: 048
     Dates: start: 20080101
  7. MS CONTIN [Concomitant]
     Dates: start: 20080101
  8. GABAPENTIN [Concomitant]
     Route: 048
     Dates: start: 20080101

REACTIONS (2)
  - DRUG INTERACTION [None]
  - INTERNATIONAL NORMALISED RATIO INCREASED [None]
